FAERS Safety Report 20998954 (Version 3)
Quarter: 2022Q4

REPORT INFORMATION
  Report Type: Spontaneous
  Country: US (occurrence: US)
  Receive Date: 20220623
  Receipt Date: 20221128
  Transmission Date: 20230112
  Serious: Yes (Other)
  Sender: FDA-Public Use
  Company Number: US-PFIZER INC-202200714779

PATIENT
  Age: 73 Year
  Sex: Female
  Weight: 65.76 kg

DRUGS (2)
  1. XELJANZ [Suspect]
     Active Substance: TOFACITINIB CITRATE
     Indication: Rheumatoid arthritis
     Dosage: 5 MG, 2X/DAY
     Dates: start: 2021, end: 20220429
  2. HYDROXYCHLOROQUINE DIPHOSPHATE [Suspect]
     Active Substance: HYDROXYCHLOROQUINE DIPHOSPHATE
     Dosage: UNK
     Dates: start: 2018

REACTIONS (4)
  - Lung neoplasm malignant [Not Recovered/Not Resolved]
  - COVID-19 [Unknown]
  - Sinusitis [Unknown]
  - Bronchitis [Unknown]
